FAERS Safety Report 8842566 (Version 2)
Quarter: 2013Q1

REPORT INFORMATION
  Report Type: Report from Study
  Country: JP (occurrence: JP)
  Receive Date: 20121016
  Receipt Date: 20130107
  Transmission Date: 20140127
  Serious: Yes (Other)
  Sender: FDA-Public Use
  Company Number: JP-OTSUKA-JP-2012-16074

PATIENT
  Age: 80 Year
  Sex: Female
  Weight: 29 kg

DRUGS (12)
  1. SAMSCA [Suspect]
     Indication: FLUID RETENTION
     Dosage: 3.75 MG MILLIGRAM(S), QAM
     Route: 048
     Dates: start: 20120724, end: 20120726
  2. SAMSCA [Suspect]
     Dosage: 7.5 MG MILLIGRAM(S), QAM
     Route: 048
     Dates: start: 20120727, end: 20120810
  3. HANP [Concomitant]
     Indication: CARDIAC FAILURE
     Dosage: 2.4 MCG, DAILY DOSE
     Route: 042
     Dates: end: 20120802
  4. LASIX [Concomitant]
     Indication: CARDIAC FAILURE
     Dosage: 60 MG MILLIGRAM(S), DAILY DOSE
     Route: 042
     Dates: end: 20120804
  5. BAYASPIRIN [Concomitant]
     Indication: ACUTE MYOCARDIAL INFARCTION
     Dosage: 100 MG MILLIGRAM(S), DAILY DOSE
     Route: 048
  6. PLAVIX [Concomitant]
     Indication: STENT PLACEMENT
     Dosage: 75 MG MILLIGRAM(S), DAILY DOSE
     Route: 048
  7. COVERSYL [Concomitant]
     Indication: CARDIAC FAILURE
     Dosage: 2 MG MILLIGRAM(S), DAILY DOSE
     Route: 048
  8. CRESTOR [Concomitant]
     Indication: HYPERLIPIDAEMIA
     Dosage: 2.5 MG MILLIGRAM(S), DAILY DOSE
     Route: 048
  9. MAINTATE [Concomitant]
     Indication: CARDIAC FAILURE
     Dosage: 1.25 MG MILLIGRAM(S), DAILY DOSE
     Route: 048
  10. SIGMART [Concomitant]
     Indication: ANGINA PECTORIS
     Dosage: 20 MG MILLIGRAM(S), DAILY DOSE
     Route: 048
  11. TAKEPRON [Concomitant]
     Dosage: 15 MG MILLIGRAM(S), DAILY DOSE
     Route: 048
  12. ALDACTONE A [Concomitant]
     Indication: CARDIAC FAILURE
     Dosage: 25 MG MILLIGRAM(S), DAILY DOSE
     Route: 048
     Dates: start: 20120725

REACTIONS (6)
  - Blood urea increased [Unknown]
  - Thirst [Recovered/Resolved]
  - Dehydration [Recovered/Resolved]
  - Urinary tract infection [Recovered/Resolved]
  - Decreased appetite [None]
  - Pyrexia [None]
